FAERS Safety Report 19230893 (Version 3)
Quarter: 2021Q2

REPORT INFORMATION
  Report Type: Report from Study
  Country: None (occurrence: JP)
  Receive Date: 20210507
  Receipt Date: 20210610
  Transmission Date: 20210717
  Serious: Yes (Hospitalization)
  Sender: FDA-Public Use
  Company Number: JP-ABBVIE-21P-087-3887772-00

PATIENT
  Age: 31 Year
  Sex: Female
  Weight: 79.7 kg

DRUGS (7)
  1. BAYASPIRIN TABLETS [Concomitant]
     Indication: TAKAYASU^S ARTERITIS
     Route: 048
     Dates: start: 20091006, end: 20210501
  2. ISCOTIN [Concomitant]
     Active Substance: ISONIAZID
     Indication: ANTIBIOTIC PROPHYLAXIS
     Route: 048
     Dates: start: 20090827, end: 20210501
  3. BAKTAR [Concomitant]
     Active Substance: SULFAMETHOXAZOLE\TRIMETHOPRIM
     Indication: INFECTION PROPHYLAXIS
     Route: 048
     Dates: start: 20100317, end: 20210501
  4. LANSOPRAZOLE OD [Concomitant]
     Active Substance: LANSOPRAZOLE
     Indication: GASTRITIS PROPHYLAXIS
     Route: 048
     Dates: start: 20141211
  5. EDIROL [Concomitant]
     Active Substance: ELDECALCITOL
     Indication: OSTEOPOROSIS PROPHYLAXIS
     Route: 048
     Dates: start: 20140417, end: 20210501
  6. PREDNISOLONE. [Suspect]
     Active Substance: PREDNISOLONE
     Indication: TAKAYASU^S ARTERITIS
     Route: 048
     Dates: start: 20210410, end: 20210501
  7. UPADACITINIB [Suspect]
     Active Substance: UPADACITINIB
     Indication: TAKAYASU^S ARTERITIS
     Route: 048
     Dates: start: 20210409, end: 20210501

REACTIONS (1)
  - Hepatic function abnormal [Recovered/Resolved]

NARRATIVE: CASE EVENT DATE: 20210501
